FAERS Safety Report 23550964 (Version 1)
Quarter: 2024Q1

REPORT INFORMATION
  Report Type: Spontaneous
  Country: US (occurrence: US)
  Receive Date: 20240221
  Receipt Date: 20240221
  Transmission Date: 20240409
  Serious: No
  Sender: FDA-Public Use
  Company Number: US-009507513-2402USA007156

PATIENT
  Age: 68 Year
  Sex: Male

DRUGS (4)
  1. TEMODAR [Suspect]
     Active Substance: TEMOZOLOMIDE
     Indication: Glioblastoma
     Route: 048
  2. LOMUSTINE [Concomitant]
     Active Substance: LOMUSTINE
     Indication: Glioblastoma
  3. EVEROLIMUS [Concomitant]
     Active Substance: EVEROLIMUS
     Indication: Glioblastoma
  4. DASATINIB [Concomitant]
     Active Substance: DASATINIB
     Indication: Glioblastoma

REACTIONS (1)
  - Product use in unapproved indication [Unknown]
